FAERS Safety Report 8589781 (Version 3)
Quarter: 2013Q4

REPORT INFORMATION
  Report Type: Spontaneous
  Country: US (occurrence: US)
  Receive Date: 20120601
  Receipt Date: 20131129
  Transmission Date: 20140711
  Serious: Yes (Disabling)
  Sender: FDA-Public Use
  Company Number: US-ASTRAZENECA-2012SE34434

PATIENT
  Age: 53 Year
  Sex: Male
  Weight: 99.8 kg

DRUGS (17)
  1. NEXIUM [Suspect]
     Indication: GASTRIC DISORDER
     Route: 048
  2. NEXIUM [Suspect]
     Indication: GASTRIC DISORDER
     Route: 048
     Dates: end: 2008
  3. OMEPRAZOLE [Suspect]
     Route: 048
  4. OMEPRAZOLE [Suspect]
     Route: 048
     Dates: start: 20120904
  5. PREVACID (OTC) [Concomitant]
  6. BUMETANIDE [Concomitant]
     Indication: DIURETIC THERAPY
  7. SERTRALINE [Concomitant]
     Indication: DEPRESSION
  8. TRAZODONE [Concomitant]
     Indication: DEPRESSION
  9. LOSARTAN [Concomitant]
     Indication: NEPHROPATHY
  10. PRAVASTATIN [Concomitant]
     Indication: BLOOD CHOLESTEROL
  11. HYDROCODONE [Concomitant]
     Indication: PAIN
  12. CARVEDILOL [Concomitant]
     Indication: CARDIAC DISORDER
  13. AMOXICILLIN [Concomitant]
     Indication: INFECTION
  14. ERGOCALCIFEROL (VIT D2) [Concomitant]
  15. CYANOCOBALAMIN [Concomitant]
     Route: 048
  16. MULTIVITAMIN/ MINERALS THERAPEUT [Concomitant]
     Dosage: EVERY DAY
     Route: 048
     Dates: start: 20130612
  17. SILDENAFIL CITRATE [Concomitant]
     Dates: start: 20130612

REACTIONS (15)
  - Neuropathy peripheral [Unknown]
  - Asthenia [Unknown]
  - Pain in extremity [Unknown]
  - Arthralgia [Unknown]
  - Osteoporosis [Unknown]
  - Multiple fractures [Unknown]
  - Bone loss [Unknown]
  - Bone pain [Unknown]
  - Anorexia nervosa [Unknown]
  - Arthritis [Unknown]
  - Rheumatoid arthritis [Unknown]
  - Gout [Unknown]
  - Vitamin D deficiency [Unknown]
  - Depression [Unknown]
  - Back pain [Unknown]
